FAERS Safety Report 13525737 (Version 1)
Quarter: 2017Q2

REPORT INFORMATION
  Report Type: Report from Study
  Country: None (occurrence: IL)
  Receive Date: 20170509
  Receipt Date: 20170509
  Transmission Date: 20170830
  Serious: Yes (Other)
  Sender: FDA-Public Use
  Company Number: IL-ABBVIE-17K-082-1963627-00

PATIENT
  Sex: Female

DRUGS (2)
  1. HUMIRA [Suspect]
     Active Substance: ADALIMUMAB
     Indication: PSORIATIC ARTHROPATHY
     Route: 058
     Dates: start: 20170329, end: 2017
  2. CANNABIS [Concomitant]
     Active Substance: CANNABIS SATIVA SUBSP. INDICA TOP
     Indication: PRODUCT USED FOR UNKNOWN INDICATION

REACTIONS (15)
  - Loss of consciousness [Unknown]
  - Dyspnoea [Unknown]
  - Anxiety [Unknown]
  - Arthralgia [Recovering/Resolving]
  - Chest discomfort [Unknown]
  - Nausea [Unknown]
  - Cyanosis [Recovering/Resolving]
  - Facial paralysis [Unknown]
  - Paralysis [Recovering/Resolving]
  - Peripheral swelling [Recovering/Resolving]
  - Trismus [Unknown]
  - Skin haemorrhage [Recovering/Resolving]
  - Psoriasis [Unknown]
  - Heart rate increased [Unknown]
  - Asthenia [Unknown]

NARRATIVE: CASE EVENT DATE: 2017
